FAERS Safety Report 11631148 (Version 1)
Quarter: 2015Q4

REPORT INFORMATION
  Report Type: Spontaneous
  Country: US (occurrence: US)
  Receive Date: 20151014
  Receipt Date: 20151014
  Transmission Date: 20160304
  Serious: Yes (Hospitalization, Other)
  Sender: FDA-Public Use
  Company Number: US-TEVA-600194USA

PATIENT
  Age: 68 Year
  Sex: Female

DRUGS (1)
  1. COPAXONE [Suspect]
     Active Substance: GLATIRAMER ACETATE
     Indication: MULTIPLE SCLEROSIS

REACTIONS (5)
  - Hiatus hernia [Unknown]
  - Dehydration [Unknown]
  - Pain [Unknown]
  - Loss of consciousness [Unknown]
  - Haematuria [Unknown]

NARRATIVE: CASE EVENT DATE: 20150902
